FAERS Safety Report 6758135-4 (Version None)
Quarter: 2010Q2

REPORT INFORMATION
  Report Type: 
  Country: None (occurrence: None)
  Receive Date: 20100603
  Receipt Date: 20100519
  Transmission Date: 20101027
  Serious: Yes (Other)
  Sender: FDA-Public Use
  Company Number: FK0201000202

PATIENT
  Age: 48 Year
  Sex: Female

DRUGS (3)
  1. OXALIPLATIN [Suspect]
     Dosage: INTRAVENOUS (NOT OTHERWISE SPECIFIED)
     Route: 042
  2. MIRENA [Concomitant]
  3. STEROIDS (CORTICOSTEROIDS) [Concomitant]

REACTIONS (2)
  - COLON CANCER [None]
  - VAGINAL DISCHARGE [None]
